APPROVED DRUG PRODUCT: EPTIFIBATIDE
Active Ingredient: EPTIFIBATIDE
Strength: 2MG/ML
Dosage Form/Route: INJECTABLE;INJECTION
Application: A203258 | Product #001 | TE Code: AP
Applicant: MYLAN LABORATORIES LTD
Approved: Jul 20, 2018 | RLD: No | RS: Yes | Type: RX